FAERS Safety Report 4715606-X (Version None)
Quarter: 2005Q3

REPORT INFORMATION
  Report Type: 
  Country: None (occurrence: None)
  Receive Date: 20050713
  Receipt Date: 20050627
  Transmission Date: 20060218
  Serious: Yes (Hospitalization)
  Sender: FDA-Public Use
  Company Number: FR-2005-013096

PATIENT
  Age: 86 Year
  Sex: Male

DRUGS (6)
  1. SOTALOL HCL [Suspect]
     Indication: HYPERTENSION
     Dosage: 80 MG, 2X/DAY, ORAL
     Route: 048
     Dates: start: 20010915
  2. ATORVASTATIN CALCIUM [Suspect]
     Indication: HYPERLIPIDAEMIA
     Dosage: 1X/DAY
     Dates: start: 20010316, end: 20050504
  3. LOXEN LP (NICARDIPINE HYDROCHLORIDE) [Suspect]
     Indication: HYPERTENSION
     Dosage: 50 MG, 2X/DAY, ORAL
     Route: 048
     Dates: start: 19970925
  4. LASILEX (FUROSEMIDE) [Suspect]
     Indication: HYPERTENSION
     Dosage: 40 MG, 1X/DAY, ORAL
     Route: 048
     Dates: start: 19970925, end: 20050503
  5. FOZITEC (FOSINOPIRL) [Suspect]
     Indication: HYPERTENSION
     Dosage: 20 MG, 1X/DAY, ORAL
     Route: 048
     Dates: start: 19970925, end: 20050503
  6. ENDOTELON (HERBAL EXTRACT NOS, VITIS VINIFERA) [Suspect]
     Indication: CARDIOVASCULAR DISORDER
     Dosage: 150 MG, 2X/DAY
     Dates: start: 20000913, end: 20050503

REACTIONS (14)
  - ALANINE AMINOTRANSFERASE INCREASED [None]
  - BLOOD ALKALINE PHOSPHATASE INCREASED [None]
  - CEREBROVASCULAR ACCIDENT [None]
  - ECZEMA [None]
  - GAMMA-GLUTAMYLTRANSFERASE INCREASED [None]
  - HAEMATOCRIT DECREASED [None]
  - HAEMOGLOBIN DECREASED [None]
  - HEPATIC ENZYME INCREASED [None]
  - LEUKOCYTOCLASTIC VASCULITIS [None]
  - PYREXIA [None]
  - RED BLOOD CELL COUNT DECREASED [None]
  - RENAL FAILURE ACUTE [None]
  - THROMBOCYTOPENIA [None]
  - TOXIC SKIN ERUPTION [None]
